FAERS Safety Report 13743034 (Version 7)
Quarter: 2019Q2

REPORT INFORMATION
  Report Type: Report from Study
  Country: JP (occurrence: JP)
  Receive Date: 20170711
  Receipt Date: 20190527
  Transmission Date: 20190711
  Serious: Yes (Other)
  Sender: FDA-Public Use
  Company Number: JP-INCYTE CORPORATION-2017IN005448

PATIENT

DRUGS (18)
  1. JAKAVI [Suspect]
     Active Substance: RUXOLITINIB
     Dosage: ALTERNATELY ADMINISTRATION OF 10MG,15MG (IN TWO DIVIDED DOSES), BID
     Route: 048
     Dates: start: 20170719, end: 20171011
  2. JAKAVI [Suspect]
     Active Substance: RUXOLITINIB
     Dosage: 15 MG (IN TWO DIVIDED DOSES), BID
     Route: 048
     Dates: start: 20171011, end: 20171025
  3. HYDREA [Suspect]
     Active Substance: HYDROXYUREA
     Dosage: 750 MG, UNK
     Route: 048
     Dates: start: 20160713
  4. JAKAVI [Suspect]
     Active Substance: RUXOLITINIB
     Indication: MYELOFIBROSIS
     Dosage: 5 MG, BID
     Route: 048
     Dates: start: 20160603
  5. JAKAVI [Suspect]
     Active Substance: RUXOLITINIB
     Dosage: 5 MG, BID
     Route: 048
     Dates: start: 20170515, end: 20170607
  6. JAKAVI [Suspect]
     Active Substance: RUXOLITINIB
     Dosage: 15 MG (IN TWO DIVIDED DOSES), BID
     Route: 048
     Dates: start: 20170607, end: 20170621
  7. HYDREA [Suspect]
     Active Substance: HYDROXYUREA
     Indication: MYELOFIBROSIS
     Dosage: 1000 MG, UNK
     Route: 048
     Dates: end: 20160608
  8. HYDREA [Suspect]
     Active Substance: HYDROXYUREA
     Dosage: 500 MG, UNK
     Route: 048
     Dates: start: 20170315
  9. JAKAVI [Suspect]
     Active Substance: RUXOLITINIB
     Dosage: 5 MG, BID
     Route: 048
     Dates: start: 20170315, end: 20170405
  10. REBAMIPIDE [Suspect]
     Active Substance: REBAMIPIDE
     Indication: PRODUCT USED FOR UNKNOWN INDICATION
     Dosage: 300 MG, UNK
     Route: 048
     Dates: start: 20161130, end: 20170515
  11. RED BLOOD CELLS-LEUKOCYTES REDUCED [Concomitant]
     Active Substance: HUMAN RED BLOOD CELL
     Indication: MYELOFIBROSIS
     Dosage: 400 ML, UNK
     Route: 065
     Dates: start: 20170614, end: 20171122
  12. RED BLOOD CELLS-LEUKOCYTES REDUCED [Concomitant]
     Active Substance: HUMAN RED BLOOD CELL
     Indication: ANAEMIA
     Dosage: 2 DF, UNK
     Route: 065
     Dates: start: 20170201
  13. JAKAVI [Suspect]
     Active Substance: RUXOLITINIB
     Dosage: 15 MG (IN TWO DIVIDED DOSES), BID
     Route: 048
     Dates: start: 20160810
  14. JAKAVI [Suspect]
     Active Substance: RUXOLITINIB
     Dosage: 10 MG IN THE MORNING, 5 MG IN THE EVENING, BID
     Route: 048
  15. JAKAVI [Suspect]
     Active Substance: RUXOLITINIB
     Dosage: 15 MG (IN TWO DIVIDED DOSES), BID
     Route: 048
     Dates: end: 20170315
  16. JAKAVI [Suspect]
     Active Substance: RUXOLITINIB
     Dosage: 15 MG (IN TWO DIVIDED DOSES), BID
     Route: 048
     Dates: start: 20170405, end: 20170515
  17. JAKAVI [Suspect]
     Active Substance: RUXOLITINIB
     Dosage: 5 MG, BID
     Route: 048
     Dates: start: 20170621, end: 20170719
  18. JAKAVI [Suspect]
     Active Substance: RUXOLITINIB
     Dosage: 12.5 MG (IN TWO DIVIDED DOSES), BID
     Route: 048
     Dates: start: 20171025

REACTIONS (18)
  - Haemoglobin decreased [Recovered/Resolved]
  - Blood uric acid increased [Recovering/Resolving]
  - Diarrhoea [Recovered/Resolved]
  - Blood lactate dehydrogenase increased [Recovered/Resolved]
  - Cardiac failure congestive [Recovered/Resolved]
  - Platelet count decreased [Recovered/Resolved]
  - Enteritis infectious [Recovered/Resolved]
  - Bone marrow failure [Recovered/Resolved]
  - Blood pressure increased [Unknown]
  - Platelet count decreased [Recovered/Resolved]
  - Myelofibrosis [Recovered/Resolved]
  - Anaemia [Recovered/Resolved]
  - Cardiac failure congestive [Recovered/Resolved]
  - Hyperuricaemia [Recovered/Resolved]
  - N-terminal prohormone brain natriuretic peptide increased [Recovered/Resolved]
  - Myelofibrosis [Recovering/Resolving]
  - Myelofibrosis [Recovered/Resolved]
  - Dyspnoea [Unknown]

NARRATIVE: CASE EVENT DATE: 20160615
